FAERS Safety Report 7658174-5 (Version None)
Quarter: 2011Q3

REPORT INFORMATION
  Report Type: 
  Country: None (occurrence: None)
  Receive Date: 20110802
  Receipt Date: 20110725
  Transmission Date: 20111222
  Serious: Yes (Hospitalization)
  Sender: FDA-Public Use
  Company Number: 994070

PATIENT
  Age: 65 Year
  Sex: Male

DRUGS (1)
  1. HEPARIN SODIUM [Suspect]
     Indication: INTRACRANIAL VENOUS SINUS THROMBOSIS
     Dosage: INTRAVENOUS
     Route: 042

REACTIONS (8)
  - HEMIPARESIS [None]
  - CLONUS [None]
  - BLOOD FIBRINOGEN INCREASED [None]
  - LOSS OF CONSCIOUSNESS [None]
  - HYPOTONIA [None]
  - APHASIA [None]
  - MEAN CELL VOLUME INCREASED [None]
  - STATUS EPILEPTICUS [None]
